FAERS Safety Report 19270282 (Version 1)
Quarter: 2021Q2

REPORT INFORMATION
  Report Type: Spontaneous
  Country: CA (occurrence: US)
  Receive Date: 20210518
  Receipt Date: 20210518
  Transmission Date: 20210717
  Serious: No
  Sender: FDA-Public Use
  Company Number: CA-CELLTRION INC.-2021US005605

PATIENT

DRUGS (1)
  1. TRUXIMA [Suspect]
     Active Substance: RITUXIMAB-ABBS
     Indication: PRODUCT USED FOR UNKNOWN INDICATION
     Dosage: 375 MG/M2 (880 MG) WEEKLY X 4 WEEKS; QUANTITY: 4 VIALS OF TRUXIMA 500 MG + 12 VIALS OF TRUXIMA 100 M
     Route: 042

REACTIONS (1)
  - Unevaluable event [Unknown]
